FAERS Safety Report 9723205 (Version 3)
Quarter: 2014Q1

REPORT INFORMATION
  Report Type: Report from Study
  Country: DE (occurrence: DE)
  Receive Date: 20131202
  Receipt Date: 20140129
  Transmission Date: 20141002
  Serious: Yes (Hospitalization)
  Sender: FDA-Public Use
  Company Number: DE-ROCHE-1306668

PATIENT
  Age: 66 Year
  Sex: Female
  Weight: 63 kg

DRUGS (16)
  1. PERTUZUMAB [Suspect]
     Indication: BREAST CANCER
     Dosage: LAST DOSE PRIOR TO SAE WAS 13/DEC/2013
     Route: 042
     Dates: start: 20130822
  2. TRASTUZUMAB [Suspect]
     Indication: BREAST CANCER
     Dosage: LAST DOSE PRIOR TO SAE WAS 13/DEC/2013
     Route: 042
     Dates: start: 20130822
  3. EPIRUBICIN [Suspect]
     Indication: BREAST CANCER
     Dosage: LAST DOSE PRIOR TO SAE WAS 13/DEC/2013
     Route: 042
     Dates: start: 20131115
  4. PACLITAXEL [Suspect]
     Indication: BREAST CANCER
     Dosage: LAST DOSE PRIOR TO SAE WAS 08/NOV/2013
     Route: 042
     Dates: start: 20130822
  5. CYCLOPHOSPHAMIDE [Suspect]
     Indication: BREAST CANCER
     Dosage: LAST DOSE PRIOR TO SAE WAS 13/DEC/2013
     Route: 042
     Dates: start: 20131115
  6. CYCLOPHOSPHAMIDE [Suspect]
     Dosage: LAST DOSE PRIOR TO SAE WAS 13/DEC/2013
     Route: 042
     Dates: start: 20140103
  7. DOXEPIN [Concomitant]
     Route: 065
     Dates: end: 20131115
  8. DOXEPIN [Concomitant]
     Route: 065
     Dates: start: 201311, end: 20131214
  9. SIMVASTATIN [Concomitant]
     Route: 065
  10. THYROXIN [Concomitant]
     Route: 065
     Dates: start: 2010
  11. GRANISETRON [Concomitant]
     Route: 065
     Dates: start: 20131115, end: 20131115
  12. GRANISETRON [Concomitant]
     Route: 065
     Dates: start: 20131213, end: 20131213
  13. DEXAMETHASONE [Concomitant]
     Route: 065
     Dates: start: 20131115, end: 20131115
  14. DEXAMETHASONE [Concomitant]
     Route: 065
     Dates: start: 20131213, end: 20131213
  15. MESNA [Concomitant]
     Route: 065
     Dates: start: 20131115, end: 20131115
  16. MESNA [Concomitant]
     Route: 065
     Dates: start: 20131213, end: 20131213

REACTIONS (2)
  - Acute respiratory failure [Recovered/Resolved]
  - Hyponatraemia [Recovered/Resolved]
